FAERS Safety Report 7232611-2 (Version None)
Quarter: 2011Q1

REPORT INFORMATION
  Report Type: 
  Country: None (occurrence: None)
  Receive Date: 20110119
  Receipt Date: 20110113
  Transmission Date: 20110831
  Serious: Yes (Death)
  Sender: FDA-Public Use
  Company Number: PHHY2010US88588

PATIENT
  Sex: Male

DRUGS (14)
  1. FUROSEMIDE [Concomitant]
     Dosage: 40 MG/4ML
  2. LORAZEPAM [Concomitant]
     Dosage: 0.5 MG, DAILY
     Route: 048
  3. EXJADE [Suspect]
     Dosage: 1750 MG/DAY
     Route: 048
  4. SIMVASTATIN [Concomitant]
     Dosage: 20 MG, DAILY
     Route: 048
  5. AMIODARONE [Concomitant]
     Route: 048
  6. ASPIRIN [Concomitant]
     Dosage: 325 MG,
     Route: 048
  7. LACTULOSE [Concomitant]
     Route: 048
  8. TRIFLUOPERAZINE HCL [Concomitant]
     Dosage: 1 MG, ORALLY AT BED TIME
  9. CARVEDILOL [Concomitant]
     Dosage: 12.5 MG, BID
     Route: 048
  10. GLIMEPIRIDE [Concomitant]
  11. CHROMIUM PICOLINATE [Concomitant]
     Dosage: 200 MCG,
     Route: 048
  12. PLAVIX [Concomitant]
     Dosage: 75 MG,
  13. QUETIAPINE FUMARATE [Concomitant]
     Dosage: 200 MG, ONCE DAILY
  14. NITROSTAT [Concomitant]
     Route: 060

REACTIONS (1)
  - DEATH [None]
